FAERS Safety Report 17803980 (Version 1)
Quarter: 2020Q2

REPORT INFORMATION
  Report Type: Spontaneous
  Country: AU (occurrence: AU)
  Receive Date: 20200519
  Receipt Date: 20200519
  Transmission Date: 20200714
  Serious: Yes (Other)
  Sender: FDA-Public Use
  Company Number: NVSC2020AU133813

PATIENT
  Age: 47 Year
  Sex: Male
  Weight: 86 kg

DRUGS (9)
  1. ENTRESTO [Suspect]
     Active Substance: SACUBITRIL\VALSARTAN
     Dosage: UNK (TITRATED DOSE)
     Route: 065
  2. BISOPROLOL [Suspect]
     Active Substance: BISOPROLOL
     Dosage: UNK (BISOPROLOL 10 MG)
     Route: 065
  3. COENZYME Q10 [Concomitant]
     Active Substance: UBIDECARENONE
     Indication: CARDIAC FAILURE
     Route: 065
  4. FRUSEMIDE [Suspect]
     Active Substance: FUROSEMIDE
     Indication: CARDIAC FAILURE
     Route: 065
  5. SPIRO [SPIRONOLACTONE] [Suspect]
     Active Substance: SPIRONOLACTONE
     Indication: CARDIAC FAILURE
     Route: 065
  6. BISOPROLOL [Suspect]
     Active Substance: BISOPROLOL
     Indication: CARDIAC FAILURE
     Dosage: UNK (BISOPROLOL 7.5 MG AT 2 MONTHS)
     Route: 065
  7. RAMIPRIL. [Suspect]
     Active Substance: RAMIPRIL
     Indication: CARDIAC FAILURE
     Route: 065
  8. FISH OIL [Concomitant]
     Active Substance: FISH OIL
     Indication: CARDIAC FAILURE
     Route: 065
  9. ENTRESTO [Suspect]
     Active Substance: SACUBITRIL\VALSARTAN
     Indication: CARDIAC FAILURE
     Dosage: 100 MG, BID  (DOSE: 49/51 MG)
     Route: 065

REACTIONS (6)
  - Blood creatinine increased [Unknown]
  - Orthopnoea [Not Recovered/Not Resolved]
  - Sleep apnoea syndrome [Unknown]
  - Polyuria [Unknown]
  - Blood pressure decreased [Unknown]
  - Weight decreased [Not Recovered/Not Resolved]
